FAERS Safety Report 18116618 (Version 2)
Quarter: 2022Q1

REPORT INFORMATION
  Report Type: Spontaneous
  Country: US (occurrence: US)
  Receive Date: 20200806
  Receipt Date: 20220216
  Transmission Date: 20220423
  Serious: No
  Sender: FDA-Public Use
  Company Number: US-SANOFI-00216201

PATIENT
  Sex: Female

DRUGS (1)
  1. DUPIXENT [Suspect]
     Active Substance: DUPILUMAB
     Dosage: UNK

REACTIONS (6)
  - Poor quality sleep [Unknown]
  - Condition aggravated [Unknown]
  - Skin disorder [Unknown]
  - Confusional state [Unknown]
  - Mental disorder [Unknown]
  - Intercepted product storage error [Unknown]
